FAERS Safety Report 4422766-7 (Version None)
Quarter: 2004Q3

REPORT INFORMATION
  Report Type: 
  Country: None (occurrence: None)
  Receive Date: 20040713
  Receipt Date: 20030624
  Transmission Date: 20050211
  Serious: No
  Sender: FDA-Public Use
  Company Number: PHEH2003US05326

PATIENT
  Age: 69 Year
  Sex: Female

DRUGS (10)
  1. ELIDEL [Suspect]
     Indication: ECZEMA
     Dosage: UNK, BID, TOPICAL
     Route: 061
     Dates: start: 20030618, end: 20030622
  2. DARVOCET [Concomitant]
  3. VIOXX [Concomitant]
  4. LIPOFLAVONOID (BIOFLAVONOIDS, CHOLINE BITARTRATE, HYDROXOCOBALAMIN, IN [Concomitant]
  5. COLLOIDAL ALUMINIUM HYDROXIDE [Concomitant]
  6. OSCAL [Concomitant]
  7. SYNTHROID [Concomitant]
  8. ACCUPRIL [Concomitant]
  9. CLONAZEPAM [Concomitant]
  10. PREMPRO [Concomitant]

REACTIONS (3)
  - DRY SKIN [None]
  - ECZEMA [None]
  - SKIN REACTION [None]
